FAERS Safety Report 11377210 (Version 9)
Quarter: 2017Q1

REPORT INFORMATION
  Report Type: Report from Study
  Country: JP (occurrence: JP)
  Receive Date: 20150813
  Receipt Date: 20170119
  Transmission Date: 20170428
  Serious: Yes (Hospitalization, Other)
  Sender: FDA-Public Use
  Company Number: PHJP2015JP013787

PATIENT
  Age: 70 Year
  Sex: Male
  Weight: 74 kg

DRUGS (6)
  1. PLAVIX [Concomitant]
     Active Substance: CLOPIDOGREL BISULFATE
     Indication: DIABETES MELLITUS
     Dosage: 75 MG, UNK
     Route: 048
     Dates: start: 20100623
  2. ACZ885 [Suspect]
     Active Substance: CANAKINUMAB
     Indication: CARDIOVASCULAR EVENT PROPHYLAXIS
     Dosage: 50 MG, UNK
     Route: 058
     Dates: start: 20120802, end: 20150806
  3. CRESTOR [Concomitant]
     Active Substance: ROSUVASTATIN CALCIUM
     Indication: HYPERLIPIDAEMIA
     Dosage: 2.5 MG, UNK
     Route: 048
     Dates: start: 20100623
  4. TANATRIL [Concomitant]
     Active Substance: IMIDAPRIL
     Indication: HYPERTENSION
     Dosage: 5 MG, UNK
     Route: 048
     Dates: start: 20100623
  5. ARTIST [Concomitant]
     Active Substance: CARVEDILOL
     Indication: HYPERTENSION
     Dosage: 2.5 MG, UNK
     Route: 048
     Dates: start: 20100623
  6. MOHRUS [Concomitant]
     Active Substance: KETOPROFEN
     Indication: PERIARTHRITIS
     Dosage: 1 DF, UNK
     Route: 062
     Dates: start: 20130207

REACTIONS (1)
  - Prostate cancer [Not Recovered/Not Resolved]

NARRATIVE: CASE EVENT DATE: 20150615
